FAERS Safety Report 7434684-0 (Version None)
Quarter: 2011Q2

REPORT INFORMATION
  Report Type: 
  Country: None (occurrence: None)
  Receive Date: 20110425
  Receipt Date: 20110419
  Transmission Date: 20111010
  Serious: Yes (Other)
  Sender: FDA-Public Use
  Company Number: US-AMGEN-USASP2011019934

PATIENT
  Age: 57 Year
  Sex: Female

DRUGS (3)
  1. CORTICOSTEROIDS [Concomitant]
  2. NPLATE [Suspect]
     Indication: IDIOPATHIC THROMBOCYTOPENIC PURPURA
     Dosage: 6 A?G/KG, UNK
     Dates: start: 20090302, end: 20100830
  3. NPLATE [Suspect]
     Dates: start: 20090302

REACTIONS (1)
  - BIOPSY BONE MARROW ABNORMAL [None]
